FAERS Safety Report 11994838 (Version 3)
Quarter: 2016Q1

REPORT INFORMATION
  Report Type: Spontaneous
  Country: DK (occurrence: DK)
  Receive Date: 20160203
  Receipt Date: 20160204
  Transmission Date: 20160526
  Serious: Yes (Other)
  Sender: FDA-Public Use
  Company Number: DK-JNJFOC-20151100074

PATIENT
  Age: 38 Year
  Sex: Female
  Weight: 74 kg

DRUGS (1)
  1. TOPAMAX [Suspect]
     Active Substance: TOPIRAMATE
     Indication: MIGRAINE PROPHYLAXIS
     Route: 048
     Dates: start: 201302, end: 20130813

REACTIONS (8)
  - Depression [Recovered/Resolved]
  - Nightmare [Recovered/Resolved]
  - Weight decreased [Recovered/Resolved]
  - Nephrolithiasis [Recovered/Resolved]
  - Alopecia [Recovered/Resolved]
  - Renal colic [Recovered/Resolved]
  - Memory impairment [Recovered/Resolved]
  - Hallucination, visual [Recovered/Resolved]

NARRATIVE: CASE EVENT DATE: 2013
